FAERS Safety Report 4994858-5 (Version None)
Quarter: 2006Q2

REPORT INFORMATION
  Report Type: 
  Country: None (occurrence: None)
  Receive Date: 20060508
  Receipt Date: 20060411
  Transmission Date: 20061013
  Serious: Yes (Hospitalization)
  Sender: FDA-Public Use
  Company Number: DE-AMGEN-UK174952

PATIENT
  Sex: Male

DRUGS (28)
  1. PALIFERMIN [Suspect]
     Indication: MUCOSAL INFLAMMATION
     Route: 040
     Dates: start: 20060217, end: 20060310
  2. CISPLATIN [Suspect]
     Route: 065
     Dates: start: 20060220, end: 20060313
  3. CLEXANE [Concomitant]
     Route: 058
     Dates: start: 20060330
  4. DIFLUCAN [Concomitant]
     Route: 048
     Dates: start: 20060323, end: 20060324
  5. DURAGESIC-100 [Concomitant]
     Route: 062
     Dates: start: 20060330
  6. EMEND [Concomitant]
     Route: 048
     Dates: start: 20060220
  7. FLUCONAZOLE [Concomitant]
     Route: 041
     Dates: start: 20060331
  8. FLUCONAZOLE [Concomitant]
     Route: 048
     Dates: start: 20060327
  9. FORTECORTIN [Concomitant]
     Route: 042
     Dates: start: 20060313
  10. FORTECORTIN [Concomitant]
     Route: 048
     Dates: start: 20060314
  11. KALINOR [Concomitant]
     Route: 048
     Dates: start: 20060323
  12. LACTULOSE [Concomitant]
     Route: 048
     Dates: start: 20060423
  13. PASPERTIN [Concomitant]
     Route: 048
     Dates: start: 20060223
  14. MORONAL [Concomitant]
     Route: 048
     Dates: start: 20060220, end: 20060322
  15. NEXIUM [Concomitant]
     Route: 048
     Dates: start: 20060322, end: 20060326
  16. NOVALGIN [Concomitant]
     Route: 048
     Dates: start: 20060321
  17. PANTOZOL [Concomitant]
     Route: 048
     Dates: start: 20060322
  18. PANTOZOL [Concomitant]
     Route: 042
     Dates: start: 20060330
  19. CLINDAMYCIN HCL [Concomitant]
     Route: 048
     Dates: start: 20060405
  20. VOLTAREN [Concomitant]
     Route: 048
     Dates: start: 20060323
  21. VOLTAREN [Concomitant]
     Route: 054
     Dates: start: 20060401
  22. ZOFRAN [Concomitant]
     Route: 042
     Dates: start: 20060220
  23. ZOFRAN [Concomitant]
     Route: 048
     Dates: start: 20060314
  24. ALLOPURINOL [Concomitant]
     Route: 048
     Dates: start: 20060331, end: 20060420
  25. MORPHINE SULFATE [Concomitant]
     Route: 058
     Dates: start: 20060330, end: 20060402
  26. SODIUM PICOSULFATE [Concomitant]
     Route: 048
     Dates: start: 20060315
  27. SODIUM BICARBONATE [Concomitant]
     Route: 048
     Dates: start: 20060406, end: 20060406
  28. SODIUM PHOSPHATE MONOBASIC [Concomitant]
     Route: 048
     Dates: start: 20060406, end: 20060406

REACTIONS (2)
  - DYSPHAGIA [None]
  - STOMATITIS [None]
